FAERS Safety Report 9670938 (Version 1)
Quarter: 2013Q4

REPORT INFORMATION
  Report Type: Spontaneous
  Country: FR (occurrence: FR)
  Receive Date: 20131106
  Receipt Date: 20131106
  Transmission Date: 20140711
  Serious: Yes (Death, Hospitalization)
  Sender: FDA-Public Use
  Company Number: FR-JNJFOC-20131016868

PATIENT
  Age: 55 Year
  Sex: Female
  Weight: 69 kg

DRUGS (7)
  1. DOXORUBICIN [Suspect]
     Indication: OVARIAN CANCER
     Route: 042
     Dates: start: 20130902
  2. EC145 [Suspect]
     Indication: OVARIAN CANCER
     Dosage: DAYS 1, 3 AND 5 (DURATION-4 DAYS)
     Route: 042
     Dates: start: 20130902
  3. PLACEBO [Suspect]
     Indication: OVARIAN CANCER
     Dosage: DAYS 1, 3 AND 5 (DURATION-4 DAYS)
     Route: 042
     Dates: start: 20130902
  4. EC20 [Suspect]
     Indication: SINGLE PHOTON EMISSION COMPUTERISED TOMOGRAM
     Dosage: ONCE
     Route: 042
     Dates: start: 20130826, end: 20130826
  5. FOLIC ACID [Suspect]
     Indication: SINGLE PHOTON EMISSION COMPUTERISED TOMOGRAM
     Dosage: ONCE
     Route: 065
     Dates: start: 20130826, end: 20130826
  6. INNOHEP [Concomitant]
     Indication: DEEP VEIN THROMBOSIS
     Route: 065
     Dates: start: 201306
  7. APLEXIL [Concomitant]
     Indication: COUGH
     Dosage: 1 MONTHS
     Route: 065
     Dates: start: 20130829, end: 201309

REACTIONS (6)
  - Cerebral infarction [Fatal]
  - Pulmonary embolism [Not Recovered/Not Resolved]
  - Neutropenia [Recovered/Resolved]
  - Pyrexia [Not Recovered/Not Resolved]
  - Thrombocytopenia [Recovered/Resolved]
  - Anaemia [Not Recovered/Not Resolved]
